FAERS Safety Report 10467346 (Version 2)
Quarter: 2014Q4

REPORT INFORMATION
  Report Type: Spontaneous
  Country: US (occurrence: US)
  Receive Date: 20140922
  Receipt Date: 20141126
  Transmission Date: 20150528
  Serious: Yes (Other)
  Sender: FDA-Public Use
  Company Number: US-B.I. PHARMACEUTICALS,INC./RIDGEFIELD-2014-BI-43856BP

PATIENT
  Age: 82 Year
  Sex: Female

DRUGS (1)
  1. PRADAXA [Suspect]
     Active Substance: DABIGATRAN ETEXILATE MESYLATE
     Indication: PRODUCT USED FOR UNKNOWN INDICATION
     Route: 065
     Dates: end: 20110912

REACTIONS (20)
  - Ventricular hypertrophy [Unknown]
  - Atrial fibrillation [Unknown]
  - Dilatation atrial [Unknown]
  - Atrial thrombosis [Unknown]
  - Stress [Unknown]
  - Tricuspid valve incompetence [Unknown]
  - Wheezing [Unknown]
  - Arteriosclerosis coronary artery [Unknown]
  - Dyspnoea [Unknown]
  - Peripheral swelling [Unknown]
  - Fatigue [Unknown]
  - Ejection fraction [Unknown]
  - Aortic valve incompetence [Unknown]
  - Dyspnoea exertional [Unknown]
  - Dilatation atrial [Unknown]
  - Ventricular hypokinesia [Unknown]
  - Mitral valve incompetence [Unknown]
  - Atrial flutter [Unknown]
  - Pulmonary hypertension [Unknown]
  - Systolic dysfunction [Unknown]

NARRATIVE: CASE EVENT DATE: 2011
